FAERS Safety Report 7281220-8 (Version None)
Quarter: 2011Q1

REPORT INFORMATION
  Report Type: 
  Country: None (occurrence: None)
  Receive Date: 20110208
  Receipt Date: 20110131
  Transmission Date: 20110831
  Serious: Yes (Death, Other)
  Sender: FDA-Public Use
  Company Number: CHPA2011US02092

PATIENT
  Age: 50 Year
  Sex: Female

DRUGS (7)
  1. DOXEPIN [Suspect]
     Route: 048
  2. TEMAZEPAM [Suspect]
     Route: 048
  3. PROPRANOLOL [Suspect]
     Route: 048
  4. BUSPIRON [Suspect]
     Route: 048
  5. TRAZODONE [Suspect]
     Route: 048
  6. ACETAMINOPHEN (PARACETAMOL),DIPHENHYDRAMINE HYDROCHLORIDE [Suspect]
     Route: 048
  7. DIAZEPAM [Suspect]
     Route: 048

REACTIONS (2)
  - COMPLETED SUICIDE [None]
  - CARDIO-RESPIRATORY ARREST [None]
